FAERS Safety Report 7368595-6 (Version None)
Quarter: 2011Q1

REPORT INFORMATION
  Report Type: 
  Country: None (occurrence: None)
  Receive Date: 20110310
  Receipt Date: 20110303
  Transmission Date: 20110831
  Serious: Yes (Congenital Anomaly)
  Sender: FDA-Public Use
  Company Number: 2011SP005203

PATIENT
  Age: 1 Day

DRUGS (1)
  1. PREGNYL [Suspect]
     Indication: DRUG EXPOSURE DURING PREGNANCY
     Dosage: TRPL
     Route: 064

REACTIONS (2)
  - MATERNAL DRUGS AFFECTING FOETUS [None]
  - BLINDNESS CONGENITAL [None]
